FAERS Safety Report 7633155-6 (Version None)
Quarter: 2011Q3

REPORT INFORMATION
  Report Type: 
  Country: None (occurrence: None)
  Receive Date: 20110725
  Receipt Date: 20110713
  Transmission Date: 20111222
  Serious: Yes (Disabling)
  Sender: FDA-Public Use
  Company Number: GB-UCBSA-037168

PATIENT
  Age: 47 Year
  Sex: Female

DRUGS (1)
  1. CIMZIA [Suspect]
     Dosage: 200 MG
     Route: 058
     Dates: start: 20110521

REACTIONS (1)
  - HYPOGLYCAEMIA [None]
